FAERS Safety Report 4774219-4 (Version None)
Quarter: 2005Q3

REPORT INFORMATION
  Report Type: 
  Country: None (occurrence: None)
  Receive Date: 20050914
  Receipt Date: 20041124
  Transmission Date: 20060218
  Serious: Yes (Hospitalization)
  Sender: FDA-Public Use
  Company Number: 163-20785-04110611

PATIENT
  Age: 54 Year
  Sex: Male
  Weight: 86.1 kg

DRUGS (9)
  1. THALOMID [Suspect]
     Indication: GLIOBLASTOMA MULTIFORME
     Dosage: 200 MG, DAILY, ORAL
     Route: 048
     Dates: start: 20041027, end: 20041119
  2. CYTOXAN [Suspect]
     Indication: GLIOBLASTOMA MULTIFORME
     Dosage: 100 MG, Q DAY X 21 DAYS, ORAL
     Route: 048
     Dates: start: 20041027, end: 20041116
  3. ETOPOSIDE [Suspect]
     Indication: GLIOBLASTOMA MULTIFORME
     Dates: start: 20041005, end: 20041026
  4. CELEBREX [Suspect]
     Indication: GLIOBLASTOMA MULTIFORME
  5. BACTRIM [Suspect]
     Indication: GLIOBLASTOMA MULTIFORME
     Dates: start: 20041005, end: 20041119
  6. ATIVAN [Concomitant]
  7. DECADRON [Concomitant]
  8. NYSTATIN [Concomitant]
  9. KEPPRA [Concomitant]

REACTIONS (9)
  - DYSPNOEA [None]
  - HYPOTENSION [None]
  - HYPOXIA [None]
  - LUNG INFILTRATION [None]
  - NEUTROPENIA [None]
  - PNEUMONIA [None]
  - RASH MORBILLIFORM [None]
  - SEPSIS [None]
  - STEVENS-JOHNSON SYNDROME [None]
